FAERS Safety Report 6691915-2 (Version None)
Quarter: 2010Q2

REPORT INFORMATION
  Report Type: 
  Country: None (occurrence: None)
  Receive Date: 20100422
  Receipt Date: 20091116
  Transmission Date: 20101027
  Serious: No
  Sender: FDA-Public Use
  Company Number: US-ASTRAZENECA-2009SE26690

PATIENT
  Age: 87 Year
  Sex: Female

DRUGS (7)
  1. TOPROL-XL [Suspect]
     Dosage: 25 MG TOTAL; BID
     Route: 048
     Dates: start: 20090701
  2. ZANTAC [Concomitant]
  3. ECOTRIN [Concomitant]
  4. CITRACAL [Concomitant]
  5. FOLIC ACID [Concomitant]
  6. VITAMINS [Concomitant]
  7. COSAMINE [Concomitant]
     Indication: ARTHRITIS

REACTIONS (3)
  - BLOOD PRESSURE FLUCTUATION [None]
  - BLOOD PRESSURE INADEQUATELY CONTROLLED [None]
  - DIZZINESS [None]
